FAERS Safety Report 13929783 (Version 1)
Quarter: 2017Q3

REPORT INFORMATION
  Report Type: Spontaneous
  Country: US (occurrence: US)
  Receive Date: 20170901
  Receipt Date: 20170901
  Transmission Date: 20171127
  Serious: Yes (Other)
  Sender: FDA-Public Use
  Company Number: US-CIPLA LTD.-2017US15270

PATIENT

DRUGS (10)
  1. OXALIPLATIN. [Suspect]
     Active Substance: OXALIPLATIN
     Indication: ADENOCARCINOMA
     Dosage: 130 MG/M2, BID, EVERY THREE WEEKS, TWO CYCLES
     Route: 042
  2. CAPECITABINE. [Suspect]
     Active Substance: CAPECITABINE
     Indication: METASTATIC NEOPLASM
  3. ERLOTINIB [Suspect]
     Active Substance: ERLOTINIB
     Indication: URETHRAL ADENOMA
     Dosage: UNK
     Route: 065
  4. GEMCITABINE [Suspect]
     Active Substance: GEMCITABINE\GEMCITABINE HYDROCHLORIDE
     Indication: ADENOCARCINOMA
     Dosage: UNK, 21 DAY CYCLE, 6 CYCLES
     Route: 065
  5. OXALIPLATIN. [Suspect]
     Active Substance: OXALIPLATIN
     Indication: METASTATIC NEOPLASM
  6. GEMCITABINE [Suspect]
     Active Substance: GEMCITABINE\GEMCITABINE HYDROCHLORIDE
     Indication: METASTATIC NEOPLASM
  7. CISPLATIN. [Suspect]
     Active Substance: CISPLATIN
     Indication: ADENOCARCINOMA
     Dosage: UNK, 21 DAY CYCLE
     Route: 065
  8. ERLOTINIB [Suspect]
     Active Substance: ERLOTINIB
     Indication: DISEASE PROGRESSION
  9. CAPECITABINE. [Suspect]
     Active Substance: CAPECITABINE
     Indication: ADENOCARCINOMA
     Dosage: 1000 MG, BID, EVERY THREE WEEKS, TWO CYCLES
     Route: 048
  10. CISPLATIN. [Suspect]
     Active Substance: CISPLATIN
     Indication: METASTATIC NEOPLASM

REACTIONS (7)
  - Disease progression [Unknown]
  - Disease recurrence [Unknown]
  - Drug ineffective [Unknown]
  - Dermatitis acneiform [Recovered/Resolved]
  - Neutropenia [Unknown]
  - Performance status decreased [Recovering/Resolving]
  - Neuropathy peripheral [Unknown]
